FAERS Safety Report 7370666-5 (Version None)
Quarter: 2011Q1

REPORT INFORMATION
  Report Type: 
  Country: None (occurrence: None)
  Receive Date: 20110323
  Receipt Date: 20110316
  Transmission Date: 20110831
  Serious: Yes (Other)
  Sender: FDA-Public Use
  Company Number: US-BAYER-2011-022399

PATIENT
  Age: 49 Year
  Sex: Female

DRUGS (7)
  1. DICLOFENAC [Suspect]
     Dosage: 75 MG, BID
     Route: 065
  2. PIROXICAM [Suspect]
     Dosage: 20 MG, QID
     Route: 065
  3. SULINDAC [Suspect]
     Indication: RHEUMATOID ARTHRITIS
     Dosage: 200 MG, BID
     Route: 065
  4. NAPROXEN SODIUM [Suspect]
     Indication: RHEUMATOID ARTHRITIS
     Dosage: 500 MG, BID
     Route: 065
  5. MECLOFENAMATE SODIUM [Suspect]
     Indication: RHEUMATOID ARTHRITIS
     Dosage: 100 MG, TID
     Route: 065
  6. FENOPROFEN CALCIUM [Suspect]
     Indication: RHEUMATOID ARTHRITIS
     Dosage: 600 MG, TID
     Route: 065
  7. INDOMETHACIN [Suspect]
     Dosage: 75 MG, QID
     Route: 065

REACTIONS (1)
  - INTESTINAL DIAPHRAGM DISEASE [None]
